FAERS Safety Report 5559388-0 (Version None)
Quarter: 2007Q4

REPORT INFORMATION
  Report Type: 
  Country: None (occurrence: None)
  Receive Date: 20071214
  Receipt Date: 20071001
  Transmission Date: 20080405
  Serious: No
  Sender: FDA-Public Use
  Company Number: US-ABBOTT-07P-163-0419314-00

PATIENT
  Sex: Female
  Weight: 112.72 kg

DRUGS (3)
  1. HUMIRA [Suspect]
     Indication: CROHN'S DISEASE
     Route: 058
     Dates: start: 20070726
  2. HUMIRA [Suspect]
     Dates: start: 20070726, end: 20070726
  3. HUMIRA [Suspect]

REACTIONS (5)
  - BALANCE DISORDER [None]
  - DIZZINESS [None]
  - HEADACHE [None]
  - MUSCULOSKELETAL PAIN [None]
  - TENDONITIS [None]
